APPROVED DRUG PRODUCT: MIUDELLA
Active Ingredient: COPPER
Strength: N/A
Dosage Form/Route: SYSTEM;INTRAUTERINE
Application: N218201 | Product #001
Applicant: SEBELA WOMENS HEALTH INC
Approved: Feb 24, 2025 | RLD: Yes | RS: Yes | Type: RX

PATENTS:
Patent 10398588 | Expires: Feb 24, 2034
Patent 9610191 | Expires: Feb 24, 2034
Patent 9265652 | Expires: Apr 28, 2034
Patent 9427351 | Expires: Aug 14, 2032
Patent 11850181 | Expires: Aug 14, 2032
Patent 10918516 | Expires: Jan 23, 2037
Patent 10188546 | Expires: Aug 14, 2032
Patent 11207209 | Expires: Aug 16, 2034
Patent 10159596 | Expires: Aug 14, 2032
Patent 10022264 | Expires: Mar 22, 2034
Patent 10166141 | Expires: Jun 13, 2034
Patent 9089418 | Expires: Apr 9, 2033
Patent 12138199 | Expires: Oct 18, 2033

EXCLUSIVITY:
Code: NP | Date: Feb 24, 2028